FAERS Safety Report 4413641-2 (Version None)
Quarter: 2004Q2

REPORT INFORMATION
  Report Type: 
  Country: None (occurrence: None)
  Receive Date: 20040630
  Receipt Date: 20040505
  Transmission Date: 20050107
  Serious: No
  Sender: FDA-Public Use
  Company Number: 04P-163-0259742-00

PATIENT
  Age: 77 Year
  Sex: Female
  Weight: 55.3388 kg

DRUGS (9)
  1. HUMIRA [Suspect]
     Indication: RHEUMATOID ARTHRITIS
     Dosage: 40 MG, 1 IN 2 WK SUBCUTANEOUS
     Route: 058
     Dates: start: 20030901
  2. GLUCOSAMINE W/CHONDROITIN SULFATES [Concomitant]
  3. BISOPROLOL FUMARATE [Concomitant]
  4. LISINOPRIL [Concomitant]
  5. ROFECOXIB [Concomitant]
  6. HYDROCHLOROQUINE PHOSPHATE [Concomitant]
  7. FLUVASTATIN SODIUM [Concomitant]
  8. PREDNISONE TAB [Concomitant]
  9. RANITIDINE [Concomitant]

REACTIONS (1)
  - INJECTION SITE STINGING [None]
